FAERS Safety Report 5262893-8 (Version None)
Quarter: 2007Q1

REPORT INFORMATION
  Report Type: 
  Country: None (occurrence: None)
  Receive Date: 20070308
  Receipt Date: 20070227
  Transmission Date: 20070707
  Serious: Yes (Life-Threatening)
  Sender: FDA-Public Use
  Company Number: E2020-01015-SPO-JP

PATIENT
  Age: 78 Year
  Sex: Male

DRUGS (8)
  1. ARICEPT [Suspect]
     Dosage: 5 MG, 1 IN 1 D, ORAL
     Route: 048
     Dates: start: 20060412, end: 20060731
  2. ARICEPT [Suspect]
     Dosage: 5 MG, 1 IN 1 D, ORAL
     Route: 048
     Dates: start: 20060831, end: 20061030
  3. BLOPRESS (CANDESARTAB CILEXETIL) [Concomitant]
  4. NORVASC [Concomitant]
  5. DEPAKENE [Concomitant]
  6. BUP-4 (PROPIVERINE HYDROCHLORIDE) [Concomitant]
  7. GRAMALIL (TIAPRIDE HYDROCHLORIDE) [Concomitant]
  8. LENDORM [Concomitant]

REACTIONS (5)
  - ARRHYTHMIA [None]
  - CARDIO-RESPIRATORY ARREST [None]
  - CEREBRAL HAEMORRHAGE [None]
  - RESTLESSNESS [None]
  - SYNCOPE [None]
